FAERS Safety Report 22604896 (Version 1)
Quarter: 2023Q2

REPORT INFORMATION
  Report Type: Spontaneous
  Country: EG (occurrence: None)
  Receive Date: 20230615
  Receipt Date: 20230615
  Transmission Date: 20230722
  Serious: Yes (Hospitalization, Other)
  Sender: FDA-Public Use
  Company Number: EG-Hikma Pharmaceuticals USA Inc.-EG-H14001-23-01950

PATIENT
  Age: 56 Year
  Sex: Female
  Weight: 90 kg

DRUGS (9)
  1. DOXORUBICIN [Suspect]
     Active Substance: DOXORUBICIN
     Indication: Non-Hodgkin^s lymphoma
     Route: 065
     Dates: start: 20230318
  2. DOXORUBICIN [Suspect]
     Active Substance: DOXORUBICIN
     Route: 065
     Dates: start: 20230517
  3. VINCRISTINE SULFATE [Suspect]
     Active Substance: VINCRISTINE SULFATE
     Indication: Non-Hodgkin^s lymphoma
     Dosage: UNKNOWN
     Route: 065
     Dates: start: 20230318
  4. VINCRISTINE SULFATE [Suspect]
     Active Substance: VINCRISTINE SULFATE
     Dosage: UNKNOWN
     Route: 065
     Dates: start: 20230517
  5. CYCLOPHOSPHAMIDE [Suspect]
     Active Substance: CYCLOPHOSPHAMIDE
     Indication: Non-Hodgkin^s lymphoma
     Route: 065
     Dates: start: 20230318
  6. CYCLOPHOSPHAMIDE [Suspect]
     Active Substance: CYCLOPHOSPHAMIDE
     Route: 065
     Dates: start: 20230517
  7. PREDNISOLONE [Suspect]
     Active Substance: PREDNISOLONE
     Indication: Non-Hodgkin^s lymphoma
     Dosage: 100 MG FOR FIVE DAYS
     Route: 065
     Dates: start: 20230318
  8. PREDNISOLONE [Suspect]
     Active Substance: PREDNISOLONE
     Dosage: 100 MG FOR FIVE DAYS
     Route: 065
     Dates: start: 20230517
  9. INSULIN MIXTARD HUMAN [Concomitant]
     Indication: Type 2 diabetes mellitus
     Dosage: 70 IU IN THE MORNING, 30 IU IN THE EVENING
     Route: 065

REACTIONS (2)
  - Blood urea increased [Recovered/Resolved]
  - Blood glucose increased [Recovered/Resolved]

NARRATIVE: CASE EVENT DATE: 20230515
